FAERS Safety Report 5798312-2 (Version None)
Quarter: 2008Q2

REPORT INFORMATION
  Report Type: 
  Country: None (occurrence: None)
  Receive Date: 20080630
  Receipt Date: 20080612
  Transmission Date: 20081010
  Serious: Yes (Hospitalization)
  Sender: FDA-Public Use
  Company Number: 19601

PATIENT
  Age: 59 Year
  Sex: Female

DRUGS (5)
  1. ANZATAX. MFR.:MAYNE [Suspect]
     Dates: start: 20080612, end: 20080612
  2. RANITIDINE HCL [Concomitant]
  3. HYDROCORTISONE [Concomitant]
  4. KYTRIL [Concomitant]
  5. TRIMETON [Concomitant]

REACTIONS (3)
  - DYSPNOEA [None]
  - ERYTHEMA [None]
  - PAIN [None]
